FAERS Safety Report 9551938 (Version 1)
Quarter: 2013Q3

REPORT INFORMATION
  Report Type: Spontaneous
  Country: US (occurrence: US)
  Receive Date: 20130925
  Receipt Date: 20130925
  Transmission Date: 20140515
  Serious: No
  Sender: FDA-Public Use
  Company Number: US-009507513-1309USA006378

PATIENT
  Age: 53 Year
  Sex: Male
  Weight: 101 kg

DRUGS (21)
  1. SAPHRIS [Suspect]
     Indication: SCHIZOAFFECTIVE DISORDER
     Dosage: 5 MG, DAILY
     Route: 048
     Dates: start: 20130702, end: 20130713
  2. SAPHRIS [Suspect]
     Dosage: 2 MG, DAILY
     Route: 048
     Dates: start: 20130714, end: 20130915
  3. METHOTREXATE [Concomitant]
     Indication: PSORIASIS
     Dosage: 20 MG, QW
     Route: 048
     Dates: start: 20101015
  4. METHOTREXATE [Concomitant]
     Indication: PSORIATIC ARTHROPATHY
  5. SEROQUEL [Concomitant]
     Indication: BIPOLAR DISORDER
     Dosage: 200 MG, DAILY
     Route: 048
     Dates: start: 20120125
  6. SEROQUEL [Concomitant]
     Indication: SCHIZOAFFECTIVE DISORDER
  7. SEROQUEL [Concomitant]
     Indication: SCHIZOPHRENIFORM DISORDER
  8. LAMOTRIGINE [Concomitant]
     Indication: BIPOLAR DISORDER
     Dosage: 400 MG, DAILY
     Dates: start: 20120125
  9. LAMOTRIGINE [Concomitant]
     Indication: SCHIZOAFFECTIVE DISORDER
  10. LAMOTRIGINE [Concomitant]
     Indication: SCHIZOPHRENIFORM DISORDER
  11. PROTOPIC [Concomitant]
     Indication: PSORIASIS
     Dosage: 0.2 G, QD
     Route: 061
  12. PROTOPIC [Concomitant]
     Indication: PSORIASIS
  13. CLOBETASOL PROPIONATE [Concomitant]
     Indication: PSORIASIS
     Dosage: 0.1 G, DAILY; TOPICAL
     Route: 061
     Dates: start: 20120131
  14. CLONAZEPAM [Concomitant]
     Indication: ANXIETY
     Dosage: 1 MG, PRN
     Dates: start: 20120927
  15. AMANTADINE HYDROCHLORIDE [Concomitant]
     Indication: RESTLESSNESS
     Dosage: 200 MG, DAILY
     Route: 048
     Dates: start: 20130609, end: 20130702
  16. GEODON [Concomitant]
     Indication: SCHIZOAFFECTIVE DISORDER
     Dosage: 60 MG, DAILY
     Route: 048
     Dates: start: 20130702, end: 20130730
  17. GEODON [Concomitant]
     Indication: SCHIZOPHRENIFORM DISORDER
  18. GEODON [Concomitant]
     Indication: BIPOLAR DISORDER
  19. GEODON [Concomitant]
     Indication: DEPRESSION
  20. IBUPROFEN [Concomitant]
     Indication: MIGRAINE WITHOUT AURA
  21. ASPIRIN [Concomitant]
     Indication: MIGRAINE WITHOUT AURA

REACTIONS (2)
  - Dyskinesia [Unknown]
  - Underdose [Unknown]
